FAERS Safety Report 10916293 (Version 12)
Quarter: 2016Q1

REPORT INFORMATION
  Report Type: Report from Study
  Country: BE (occurrence: BE)
  Receive Date: 20150316
  Receipt Date: 20160225
  Transmission Date: 20160525
  Serious: Yes (Hospitalization)
  Sender: FDA-Public Use
  Company Number: BE-ABBVIE-15P-013-1358931-00

PATIENT
  Age: 67 Year
  Sex: Male

DRUGS (10)
  1. DUODOPA [Suspect]
     Active Substance: CARBIDOPA\LEVODOPA
     Dosage: AM: 1.2ML; CD: 2.5ML/H FOR 16HRS; ED:0.7ML
     Route: 050
     Dates: start: 20150407, end: 20150410
  2. DUODOPA [Suspect]
     Active Substance: CARBIDOPA\LEVODOPA
     Dosage: AM=1.2ML, CD=2.5ML/H FOR 16HRS AND ED=0.7ML
     Route: 050
     Dates: start: 201504, end: 20150505
  3. DUODOPA [Suspect]
     Active Substance: CARBIDOPA\LEVODOPA
     Route: 050
     Dates: start: 20150505, end: 20151103
  4. DUODOPA [Suspect]
     Active Substance: CARBIDOPA\LEVODOPA
     Dosage: AM=0ML; CD=2ML/HR DURING 16HRS; ED=0.7ML
     Route: 050
     Dates: start: 20160218
  5. DUODOPA [Suspect]
     Active Substance: CARBIDOPA\LEVODOPA
     Dosage: AM 3ML, CD 1.9ML/H DURING 16HRS, ED 0.7ML
     Route: 050
     Dates: start: 20151103, end: 20160218
  6. DUODOPA [Suspect]
     Active Substance: CARBIDOPA\LEVODOPA
     Indication: PARKINSON^S DISEASE
     Dosage: UNKNOWN
     Route: 050
     Dates: start: 20080303, end: 20080401
  7. DUODOPA [Suspect]
     Active Substance: CARBIDOPA\LEVODOPA
     Dosage: DOSAGE CONTINUOUSLY MONITORED AND ADJUSTED
     Route: 050
     Dates: start: 20080601, end: 20150305
  8. DUODOPA [Suspect]
     Active Substance: CARBIDOPA\LEVODOPA
     Dosage: AM DOSE 1.2ML, CONTIN DOSE 2.2ML/H DURING 16HRS, ED 0.7ML
     Route: 050
     Dates: start: 20150305, end: 20150407
  9. DUODOPA [Suspect]
     Active Substance: CARBIDOPA\LEVODOPA
     Dosage: AM DOSE 4ML, CONTIN DOSE 3.3ML/H DURING 16HRS, ED 0.8ML
     Route: 050
     Dates: start: 20080401, end: 20080601
  10. DUODOPA [Suspect]
     Active Substance: CARBIDOPA\LEVODOPA
     Dosage: AM=1.2ML;CD=2.5ML/HR DURING 16HRS;ED=0.7ML
     Route: 050
     Dates: start: 20150410

REACTIONS (13)
  - General physical health deterioration [Unknown]
  - Weight gain poor [Unknown]
  - Dyskinesia [Unknown]
  - Dysphagia [Recovered/Resolved]
  - Enteral nutrition [Recovered/Resolved]
  - Device occlusion [Unknown]
  - Salivary hypersecretion [Not Recovered/Not Resolved]
  - Vitamin B12 deficiency [Unknown]
  - Diarrhoea [Unknown]
  - Gait disturbance [Unknown]
  - Lung infection [Unknown]
  - Incorrect route of drug administration [Recovered/Resolved]
  - Confusional state [Not Recovered/Not Resolved]

NARRATIVE: CASE EVENT DATE: 20150626
